FAERS Safety Report 10061731 (Version 1)
Quarter: 2014Q2

REPORT INFORMATION
  Report Type: Spontaneous
  Country: US (occurrence: US)
  Receive Date: 20140407
  Receipt Date: 20140407
  Transmission Date: 20141212
  Serious: Yes (Life-Threatening, Hospitalization)
  Sender: FDA-Public Use
  Company Number: US-SA-2014SA041018

PATIENT
  Age: 56 Year
  Sex: Male

DRUGS (3)
  1. RASBURICASE [Suspect]
     Indication: TUMOUR LYSIS SYNDROME
     Route: 065
  2. RASBURICASE [Suspect]
     Indication: RENAL FAILURE
     Route: 065
  3. ANTIBIOTICS [Concomitant]
     Indication: CELLULITIS

REACTIONS (9)
  - Methaemoglobinaemia [Recovered/Resolved]
  - Oxygen saturation decreased [Recovered/Resolved]
  - Respiratory distress [Recovered/Resolved]
  - Haemolytic anaemia [Recovered/Resolved]
  - Haematocrit decreased [Recovered/Resolved]
  - Haptoglobin decreased [Recovered/Resolved]
  - Anisocytosis [Recovered/Resolved]
  - Haemolysis [Recovered/Resolved]
  - Neurological decompensation [Recovered/Resolved]
